FAERS Safety Report 17684628 (Version 1)
Quarter: 2020Q2

REPORT INFORMATION
  Report Type: Spontaneous
  Country: HR (occurrence: HR)
  Receive Date: 20200420
  Receipt Date: 20200420
  Transmission Date: 20200714
  Serious: Yes (Hospitalization)
  Sender: FDA-Public Use
  Company Number: HR-MYLANLABS-2020M1039103

PATIENT
  Age: 84 Year
  Sex: Male
  Weight: 70 kg

DRUGS (6)
  1. DALNEVA [Concomitant]
     Active Substance: AMLODIPINE BESYLATE\PERINDOPRIL ERBUMINE
     Indication: HYPERTENSION
     Dosage: UNK
     Route: 048
  2. BRUFEN [Suspect]
     Active Substance: IBUPROFEN
     Indication: BODY TEMPERATURE INCREASED
     Dosage: 600 MILLIGRAM
     Route: 048
     Dates: start: 20200304
  3. LANITOP [Concomitant]
     Active Substance: METILDIGOXIN
     Dosage: 0.1 MILLIGRAM
     Route: 048
  4. XARELTO [Concomitant]
     Active Substance: RIVAROXABAN
     Indication: ATRIAL FIBRILLATION
     Dosage: UNK
     Route: 048
  5. KLAVOCIN BID [Suspect]
     Active Substance: AMOXICILLIN\CLAVULANATE POTASSIUM
     Indication: BODY TEMPERATURE INCREASED
     Dosage: 2X1
     Route: 048
     Dates: start: 20200304, end: 20200304
  6. ISOPTIN [Concomitant]
     Active Substance: VERAPAMIL HYDROCHLORIDE
     Dosage: 80 MILLIGRAM
     Route: 048

REACTIONS (5)
  - Hypoaesthesia oral [Recovered/Resolved]
  - Asthenia [Recovered/Resolved]
  - Drug hypersensitivity [Recovered/Resolved]
  - Rash [Recovered/Resolved]
  - Nausea [Recovered/Resolved]

NARRATIVE: CASE EVENT DATE: 20200304
